FAERS Safety Report 14999422 (Version 4)
Quarter: 2018Q4

REPORT INFORMATION
  Report Type: Spontaneous
  Country: US (occurrence: US)
  Receive Date: 20180612
  Receipt Date: 20181015
  Transmission Date: 20190204
  Serious: Yes (Other)
  Sender: FDA-Public Use
  Company Number: US-PFIZER INC-2018238819

PATIENT
  Age: 59 Year
  Sex: Male

DRUGS (1)
  1. XELJANZ XR [Suspect]
     Active Substance: TOFACITINIB CITRATE
     Indication: RHEUMATOID ARTHRITIS
     Dosage: 11 MG, UNK

REACTIONS (6)
  - Abdominal discomfort [Unknown]
  - Dyspnoea [Unknown]
  - Lymphoma [Unknown]
  - Dizziness [Unknown]
  - Back disorder [Unknown]
  - Headache [Unknown]

NARRATIVE: CASE EVENT DATE: 201806
